FAERS Safety Report 23822000 (Version 2)
Quarter: 2024Q2

REPORT INFORMATION
  Report Type: Report from Study
  Country: US (occurrence: US)
  Receive Date: 20240506
  Receipt Date: 20240513
  Transmission Date: 20240716
  Serious: Yes (Death)
  Sender: FDA-Public Use
  Company Number: US-Stemline Therapeutics, Inc.-2024ST002268

PATIENT
  Age: 86 Year
  Sex: Female

DRUGS (1)
  1. ORSERDU [Suspect]
     Active Substance: ELACESTRANT
     Indication: Product used for unknown indication
     Dosage: 86 MG, 4 TABLETS
     Route: 048
     Dates: start: 20230313, end: 20240405

REACTIONS (2)
  - Metastatic neoplasm [Fatal]
  - Death [Fatal]

NARRATIVE: CASE EVENT DATE: 20240411
